FAERS Safety Report 10423954 (Version 2)
Quarter: 2014Q4

REPORT INFORMATION
  Report Type: Spontaneous
  Country: US (occurrence: None)
  Receive Date: 20140722
  Receipt Date: 20141020
  Transmission Date: 20150528
  Serious: No
  Sender: FDA-Public Use
  Company Number: AEGR000500

PATIENT
  Age: 58 Year
  Sex: Female
  Weight: 104.3 kg

DRUGS (15)
  1. WARFARIN SODIUM (WARFARIN SODIUM) [Concomitant]
     Active Substance: WARFARIN SODIUM
  2. OMEGA 3-6-9 (FISH OIL, TOCOPHEROL) [Concomitant]
  3. ASPIRIN (ACETYLSALICYLIC ACID) [Concomitant]
     Active Substance: ASPIRIN
  4. ZETIA [Concomitant]
     Active Substance: EZETIMIBE
  5. POTASSIUM CHLORIDE (POTASSIUM CHLORIDE) [Concomitant]
     Active Substance: POTASSIUM CHLORIDE
  6. NEBIVOLOL (NEBIVOLOL) (NEBIVOLOL) [Concomitant]
     Active Substance: NEBIVOLOL
  7. ROSUVASTATIN CALCIUM. [Concomitant]
     Active Substance: ROSUVASTATIN CALCIUM
  8. BYSTOLIC [Concomitant]
     Active Substance: NEBIVOLOL HYDROCHLORIDE
  9. CRESTOR [Concomitant]
     Active Substance: ROSUVASTATIN CALCIUM
  10. FUROSEMIDE (FUROSEMIDE) [Concomitant]
     Active Substance: FUROSEMIDE
  11. TOLTERODINE TARTRATE (TOLTERODINE TARTRATE [Concomitant]
  12. JUXTAPID [Suspect]
     Active Substance: LOMITAPIDE MESYLATE
     Indication: TYPE IIA HYPERLIPIDAEMIA
     Route: 048
     Dates: start: 20131010, end: 20131209
  13. LOSARTAN (LOSARTAN POTASSIUM) [Concomitant]
  14. PREMARIN (ESTROGENS CONJUGATED) [Concomitant]
  15. TORSEMIDE (TORASEMIDE) [Concomitant]

REACTIONS (5)
  - Faecal incontinence [None]
  - Malaise [None]
  - Gastrointestinal tract irritation [None]
  - Off label use [None]
  - Diarrhoea [None]
